FAERS Safety Report 23551167 (Version 1)
Quarter: 2024Q1

REPORT INFORMATION
  Report Type: Spontaneous
  Country: US (occurrence: US)
  Receive Date: 20240222
  Receipt Date: 20240222
  Transmission Date: 20240409
  Serious: No
  Sender: FDA-Public Use
  Company Number: US-PADAGIS-2024PAD00207

PATIENT

DRUGS (2)
  1. ESTRADIOL VAGINAL [Suspect]
     Active Substance: ESTRADIOL
     Indication: Product used for unknown indication
     Dosage: UNK, UNK
     Route: 067
     Dates: start: 202310, end: 202401
  2. ESTRADIOL VAGINAL [Suspect]
     Active Substance: ESTRADIOL
     Dosage: UNK, RESTARTED
     Route: 067

REACTIONS (7)
  - Application site erythema [Recovering/Resolving]
  - Vaginal discharge [None]
  - Application site exfoliation [None]
  - Lichen sclerosus [Unknown]
  - Mucosal inflammation [Recovering/Resolving]
  - Blister [Unknown]
  - Application site pain [Recovering/Resolving]

NARRATIVE: CASE EVENT DATE: 20231001
